FAERS Safety Report 8113638-5 (Version None)
Quarter: 2012Q1

REPORT INFORMATION
  Report Type: 
  Country: None (occurrence: None)
  Receive Date: 20120203
  Receipt Date: 20120125
  Transmission Date: 20120608
  Serious: Yes (Hospitalization)
  Sender: FDA-Public Use
  Company Number: SG-ABBOTT-11P-141-0887626-00

PATIENT
  Sex: Female

DRUGS (5)
  1. KALETRA [Suspect]
     Indication: HIV INFECTION
     Route: 048
     Dates: start: 20100701
  2. ABACAVIR SULFATE/LAMIVUDINE [Concomitant]
     Indication: HIV INFECTION
  3. FENOFIBRATE [Concomitant]
     Indication: BLOOD CHOLESTEROL
     Dosage: OM
     Dates: start: 20091216
  4. PRAVASTATIN [Concomitant]
     Indication: BLOOD CHOLESTEROL
     Dosage: OM
     Dates: start: 20100702
  5. TRUVADA [Concomitant]
     Indication: HIV INFECTION
     Dosage: 1 TAB OM
     Dates: start: 20100701, end: 20111228

REACTIONS (1)
  - RENAL IMPAIRMENT [None]
